FAERS Safety Report 6175092-2 (Version None)
Quarter: 2009Q2

REPORT INFORMATION
  Report Type: 
  Country: None (occurrence: None)
  Receive Date: 20090430
  Receipt Date: 20090224
  Transmission Date: 20091009
  Serious: Yes (Hospitalization)
  Sender: FDA-Public Use
  Company Number: US-ASTRAZENECA-2009UW05151

PATIENT
  Age: 48 Year
  Sex: Female
  Weight: 113.4 kg

DRUGS (6)
  1. NEXIUM [Suspect]
     Indication: GASTRITIS
     Route: 048
  2. LEVOTHROID [Concomitant]
  3. MICARDIS [Concomitant]
  4. CARAFATE [Concomitant]
     Dates: end: 20090201
  5. PHENERGAN [Concomitant]
     Dates: end: 20090201
  6. RANITIDINE [Concomitant]

REACTIONS (2)
  - INSOMNIA [None]
  - SINUS TACHYCARDIA [None]
